FAERS Safety Report 8702679 (Version 2)
Quarter: 2013Q3

REPORT INFORMATION
  Report Type: Report from Study
  Country: PR (occurrence: PR)
  Receive Date: 20120803
  Receipt Date: 20130927
  Transmission Date: 20140515
  Serious: Yes (Hospitalization, Other)
  Sender: FDA-Public Use
  Company Number: PR-ALEXION PHARMACEUTICALS INC.-A201201430

PATIENT
  Sex: Female

DRUGS (1)
  1. SOLIRIS [Suspect]
     Indication: HAEMOLYTIC URAEMIC SYNDROME
     Dosage: UNK
     Route: 042

REACTIONS (5)
  - Endotracheal intubation [Unknown]
  - Laryngeal granuloma [Not Recovered/Not Resolved]
  - Tracheostomy [Not Recovered/Not Resolved]
  - Sepsis [Recovering/Resolving]
  - Weight decreased [Unknown]
